FAERS Safety Report 5819094-1 (Version None)
Quarter: 2008Q3

REPORT INFORMATION
  Report Type: 
  Country: None (occurrence: None)
  Receive Date: 20080721
  Receipt Date: 20080721
  Transmission Date: 20090109
  Serious: Yes (Hospitalization)
  Sender: FDA-Public Use
  Company Number: None

PATIENT
  Sex: Male
  Weight: 79.3795 kg

DRUGS (4)
  1. XELODA [Suspect]
     Indication: COLON CANCER METASTATIC
     Dosage: DAILY X 14 DAYS PO
     Route: 048
     Dates: start: 20080509
  2. ERBITUX [Suspect]
     Indication: COLON CANCER METASTATIC
     Dosage: Q WEEK IV
     Route: 042
     Dates: start: 20080509
  3. OXALIPLATIN [Suspect]
     Indication: COLON CANCER METASTATIC
     Dates: start: 20080509
  4. AVASTIN [Suspect]
     Indication: COLON CANCER METASTATIC
     Dates: start: 20080509

REACTIONS (8)
  - ABDOMINAL PAIN [None]
  - ALANINE AMINOTRANSFERASE INCREASED [None]
  - ASPARTATE AMINOTRANSFERASE INCREASED [None]
  - BLOOD AMYLASE INCREASED [None]
  - BLOOD BILIRUBIN INCREASED [None]
  - DIARRHOEA [None]
  - LIPASE INCREASED [None]
  - NAUSEA [None]
